FAERS Safety Report 11076586 (Version 1)
Quarter: 2015Q2

REPORT INFORMATION
  Report Type: Spontaneous
  Country: GB (occurrence: GB)
  Receive Date: 20150429
  Receipt Date: 20150429
  Transmission Date: 20150821
  Serious: Yes (Other)
  Sender: FDA-Public Use
  Company Number: GB-AUROBINDO-AUR-APL-2015-03661

PATIENT
  Age: 50 Year
  Sex: Female

DRUGS (6)
  1. ESMYA [Interacting]
     Active Substance: ULIPRISTAL ACETATE
     Indication: UTERINE LEIOMYOMA
     Dosage: 5 MG, UNK
     Route: 048
     Dates: start: 20150121, end: 20150129
  2. LANTUS [Concomitant]
     Active Substance: INSULIN GLARGINE
     Indication: PRODUCT USED FOR UNKNOWN INDICATION
     Dosage: UNK
     Route: 065
  3. FELODIPINE. [Concomitant]
     Active Substance: FELODIPINE
     Indication: ANGINA PECTORIS
     Dosage: UNK
     Route: 065
     Dates: start: 20150129
  4. NOVORAPID [Concomitant]
     Active Substance: INSULIN ASPART
     Indication: PRODUCT USED FOR UNKNOWN INDICATION
     Dosage: UNK
     Route: 065
  5. OMEPRAZOLE. [Concomitant]
     Active Substance: OMEPRAZOLE
     Indication: PRODUCT USED FOR UNKNOWN INDICATION
     Dosage: 200 MG, TAKING FOR YEARS
     Route: 048
  6. VALSARTAN. [Suspect]
     Active Substance: VALSARTAN
     Indication: PRODUCT USED FOR UNKNOWN INDICATION
     Dosage: UNK
     Route: 065

REACTIONS (2)
  - Drug interaction [Unknown]
  - Blood pressure increased [Recovered/Resolved]

NARRATIVE: CASE EVENT DATE: 20150128
